FAERS Safety Report 9880744 (Version 1)
Quarter: 2014Q1

REPORT INFORMATION
  Report Type: Spontaneous
  Country: US (occurrence: US)
  Receive Date: 20140207
  Receipt Date: 20140207
  Transmission Date: 20141002
  Serious: Yes (Other)
  Sender: FDA-Public Use
  Company Number: US-PFIZER INC-2014032495

PATIENT
  Age: 57 Year
  Sex: Male
  Weight: 90.7 kg

DRUGS (3)
  1. LYRICA [Suspect]
     Indication: NEUROPATHY PERIPHERAL
     Dosage: 75 MG, 3X/DAY
     Route: 048
     Dates: start: 201306, end: 20140101
  2. TRAMADOL [Concomitant]
     Indication: PAIN
     Dosage: UNK
  3. NORCO [Concomitant]
     Indication: PAIN
     Dosage: UNK

REACTIONS (2)
  - Neoplasm malignant [Unknown]
  - Headache [Recovered/Resolved]
